FAERS Safety Report 5748204-X (Version None)
Quarter: 2008Q2

REPORT INFORMATION
  Report Type: 
  Country: None (occurrence: None)
  Receive Date: 20080523
  Receipt Date: 20080513
  Transmission Date: 20081010
  Serious: Yes (Hospitalization, Disabling)
  Sender: FDA-Public Use
  Company Number: FR-PFIZER INC-2008041926

PATIENT
  Sex: Female

DRUGS (4)
  1. XANAX [Suspect]
     Route: 048
     Dates: start: 20030101, end: 20080222
  2. GLEEVEC [Suspect]
     Indication: GASTROINTESTINAL STROMAL TUMOUR
     Dates: start: 20070201, end: 20080222
  3. OXAZEPAM [Suspect]
     Route: 048
     Dates: start: 20030101, end: 20080222
  4. LOPERAMIDE HCL [Concomitant]
     Route: 048
     Dates: start: 20040101, end: 20080222

REACTIONS (4)
  - CYTOLYTIC HEPATITIS [None]
  - HEPATIC FAILURE [None]
  - JAUNDICE [None]
  - TRANSAMINASES INCREASED [None]
